FAERS Safety Report 7813914-7 (Version None)
Quarter: 2011Q4

REPORT INFORMATION
  Report Type: 
  Country: None (occurrence: None)
  Receive Date: 20111014
  Receipt Date: 20111003
  Transmission Date: 20120403
  Serious: Yes (Other)
  Sender: FDA-Public Use
  Company Number: JP-PFIZER INC-2011245210

PATIENT
  Age: 91 Year
  Sex: Male

DRUGS (8)
  1. MAGNESIUM OXIDE [Concomitant]
     Dosage: UNK
  2. LENIMEC [Suspect]
     Dosage: UNK
     Route: 050
  3. LIPITOR [Suspect]
     Dosage: 5 MG DAILY
     Route: 050
  4. LANSOPRAZOLE [Concomitant]
     Dosage: UNK
  5. WARFARIN [Concomitant]
     Dosage: UNK
  6. BIOFERMIN [Concomitant]
     Dosage: UNK
  7. VERAPAMIL HYDROCHLORIDE [Concomitant]
     Dosage: UNK
  8. CARBOCISTEINE [Concomitant]
     Dosage: UNK

REACTIONS (1)
  - INAPPROPRIATE ANTIDIURETIC HORMONE SECRETION [None]
